FAERS Safety Report 5303772-7 (Version None)
Quarter: 2007Q2

REPORT INFORMATION
  Report Type: 
  Country: None (occurrence: None)
  Receive Date: 20070420
  Receipt Date: 20070420
  Transmission Date: 20071010
  Serious: Yes (Other)
  Sender: FDA-Public Use
  Company Number: SE-BRISTOL-MYERS SQUIBB COMPANY-13754940

PATIENT
  Age: 74 Year
  Sex: Female
  Weight: 74 kg

DRUGS (3)
  1. CYCLOPHOSPHAMIDE [Suspect]
     Indication: BREAST CANCER
     Dates: start: 20061025
  2. EPIRUBICIN [Suspect]
     Indication: BREAST CANCER
     Dates: start: 20061025
  3. FLUOROURACIL [Suspect]
     Indication: BREAST CANCER
     Dates: start: 20061025

REACTIONS (1)
  - VENOUS THROMBOSIS [None]
